FAERS Safety Report 8811034 (Version 1)
Quarter: 2012Q4

REPORT INFORMATION
  Report Type: 
  Country: CN (occurrence: CN)
  Receive Date: 20120927
  Receipt Date: 20120927
  Transmission Date: 20130627
  Serious: Yes (Death)
  Sender: FDA-Public Use
  Company Number: CN-SANOFI-AVENTIS-2012SA070291

PATIENT
  Sex: Male
  Weight: 50 kg

DRUGS (1)
  1. XATRAL [Suspect]
     Indication: CHRONIC PROSTATITIS
     Route: 048
     Dates: start: 20050915, end: 20051215

REACTIONS (2)
  - Motor neurone disease [Fatal]
  - Hypopnoea [Unknown]
